FAERS Safety Report 19746217 (Version 1)
Quarter: 2021Q3

REPORT INFORMATION
  Report Type: Spontaneous
  Country: TZ (occurrence: TZ)
  Receive Date: 20210825
  Receipt Date: 20210825
  Transmission Date: 20211014
  Serious: Yes (Other)
  Sender: FDA-Public Use
  Company Number: TZ-LUPIN PHARMACEUTICALS INC.-2021-15775

PATIENT
  Age: 31 Year
  Sex: Female

DRUGS (7)
  1. ETHIONAMIDE [Suspect]
     Active Substance: ETHIONAMIDE
     Indication: TUBERCULOSIS
     Dosage: 750 MILLIGRAM, QD
     Route: 065
     Dates: start: 201705
  2. KANAMYCIN [Suspect]
     Active Substance: KANAMYCIN A SULFATE
     Indication: TUBERCULOSIS
     Dosage: 625 MILLIGRAM, QD
     Route: 030
     Dates: start: 201705
  3. PYRIDOXINE [Suspect]
     Active Substance: PYRIDOXINE
     Indication: TUBERCULOSIS
     Dosage: 100 MILLIGRAM, QD
     Route: 065
     Dates: start: 201705
  4. LEVOFLOXACIN TABLETS [Suspect]
     Active Substance: LEVOFLOXACIN
     Dosage: 750 MILLIGRAM, QD
     Route: 048
  5. PYRAZINAMIDE TABLET [Suspect]
     Active Substance: PYRAZINAMIDE
     Indication: TUBERCULOSIS
     Dosage: 1.6 GRAM, QD
     Route: 065
     Dates: start: 201705
  6. CYCLOSERINE. [Suspect]
     Active Substance: CYCLOSERINE
     Indication: TUBERCULOSIS
     Dosage: 500 MILLIGRAM, QD
     Route: 065
     Dates: start: 201705
  7. LEVOFLOXACIN TABLETS [Suspect]
     Active Substance: LEVOFLOXACIN
     Indication: TUBERCULOSIS
     Dosage: 750 MILLIGRAM, QD
     Route: 048
     Dates: start: 201705

REACTIONS (1)
  - Treatment failure [Unknown]
